FAERS Safety Report 9268595 (Version 1)
Quarter: 2013Q2

REPORT INFORMATION
  Report Type: Spontaneous
  Country: US (occurrence: US)
  Receive Date: 20130502
  Receipt Date: 20130502
  Transmission Date: 20140414
  Serious: Yes (Other)
  Sender: FDA-Public Use
  Company Number: CHPA2013US007208

PATIENT
  Sex: Female

DRUGS (1)
  1. EXCEDRIN EXTRA STRENGTH [Suspect]
     Indication: PAIN
     Dosage: 3 DF, QID
     Route: 048
     Dates: start: 1972, end: 2012

REACTIONS (2)
  - Haemoptysis [Recovered/Resolved]
  - Ulcer haemorrhage [Recovered/Resolved]
